FAERS Safety Report 25880996 (Version 1)
Quarter: 2025Q4

REPORT INFORMATION
  Report Type: Spontaneous
  Country: US (occurrence: US)
  Receive Date: 20251004
  Receipt Date: 20251004
  Transmission Date: 20260117
  Serious: No
  Sender: SANOFI AVENTIS
  Company Number: US-SA-2025SA292037

PATIENT
  Sex: Male
  Weight: 94.8 kg

DRUGS (4)
  1. DUPIXENT [Suspect]
     Active Substance: DUPILUMAB
     Indication: Asthma
     Dosage: 300 MG, QOW
     Route: 058
     Dates: end: 202509
  2. LIPITOR [Concomitant]
     Active Substance: ATORVASTATIN CALCIUM
     Dosage: UNK
  3. TESTOSTERONE CYPIONATE [Concomitant]
     Active Substance: TESTOSTERONE CYPIONATE
     Dosage: UNK
  4. VITAMINS [Concomitant]
     Active Substance: VITAMINS
     Dosage: UNK

REACTIONS (1)
  - Drug ineffective [Unknown]
